FAERS Safety Report 6235040-3 (Version None)
Quarter: 2009Q2

REPORT INFORMATION
  Report Type: 
  Country: None (occurrence: None)
  Receive Date: 20090618
  Receipt Date: 20090615
  Transmission Date: 20091009
  Serious: Yes (Death, Hospitalization, Other)
  Sender: FDA-Public Use
  Company Number: US-ROCHE-612611

PATIENT
  Sex: Female
  Weight: 72.6 kg

DRUGS (3)
  1. CAPECITABINE [Suspect]
     Dosage: 1500 MG AM, 1500 MG PM. FREQUENCY: BID; 14 DAYS OF 21 DAYS
     Route: 048
     Dates: start: 20081022, end: 20090211
  2. LAPATINIB [Suspect]
     Indication: BREAST CANCER
     Route: 048
     Dates: start: 20080827, end: 20081111
  3. ZOMETA [Concomitant]

REACTIONS (4)
  - DISEASE PROGRESSION [None]
  - EJECTION FRACTION ABNORMAL [None]
  - HEPATIC FAILURE [None]
  - THROMBOCYTOPENIA [None]
